FAERS Safety Report 20699251 (Version 2)
Quarter: 2022Q2

REPORT INFORMATION
  Report Type: Other
  Country: JP (occurrence: JP)
  Receive Date: 20220412
  Receipt Date: 20220630
  Transmission Date: 20220721
  Serious: Yes (Other)
  Sender: FDA-Public Use
  Company Number: JP-CHUGAI-2022012070

PATIENT
  Age: 88 Year
  Sex: Female

DRUGS (2)
  1. ACTEMRA [Suspect]
     Active Substance: TOCILIZUMAB
     Indication: Rheumatoid arthritis
     Dosage: UNK
     Route: 041
     Dates: start: 200909, end: 2021
  2. ACTEMRA [Suspect]
     Active Substance: TOCILIZUMAB
     Indication: Rheumatoid arthritis
     Dosage: 162 MILLIGRAM, ONCE/WEEK
     Route: 058
     Dates: start: 202112

REACTIONS (4)
  - Knee operation [Unknown]
  - Spinal operation [Unknown]
  - Physical deconditioning [Unknown]
  - Back pain [Unknown]
